FAERS Safety Report 10227810 (Version 1)
Quarter: 2014Q2

REPORT INFORMATION
  Report Type: Spontaneous
  Country: PT (occurrence: None)
  Receive Date: 20140606
  Receipt Date: 20140606
  Transmission Date: 20141212
  Serious: Yes (Other)
  Sender: FDA-Public Use
  Company Number: FK201402126

PATIENT
  Age: 5 Year
  Sex: Female

DRUGS (3)
  1. ACYCLOVIR SODIUM (MANUFACTURER UNKNOWN) (ACYCLOVIR SODIUM) (ACYCLOVIR SODIUM) [Suspect]
     Indication: EPSTEIN-BARR VIRUS INFECTION
     Route: 042
  2. ACYCLOVIR SODIUM (MANUFACTURER UNKNOWN) (ACYCLOVIR SODIUM) (ACYCLOVIR SODIUM) [Suspect]
     Indication: PNEUMONITIS
     Route: 042
  3. CEFTRIAXONE (CEFTRIAXONE) [Concomitant]

REACTIONS (1)
  - Off label use [None]
